FAERS Safety Report 9841617 (Version 1)
Quarter: 2013Q4

REPORT INFORMATION
  Report Type: Spontaneous
  Country: US (occurrence: None)
  Receive Date: 20131219
  Receipt Date: 20131219
  Transmission Date: 20140711
  Serious: Yes (Hospitalization)
  Sender: FDA-Public Use
  Company Number: 163-20785-13061248

PATIENT
  Age: 81 Year
  Sex: Male

DRUGS (11)
  1. THALOMID (THALIDOMIDE) (200 MILLIGRAM, CAPSULES) [Suspect]
     Indication: PLASMA CELL MYELOMA
     Dosage: 1 IN 1 D
     Route: 048
     Dates: start: 200811
  2. CLONDIDINE [Concomitant]
  3. HYDRALAZINE [Concomitant]
  4. ASA [Concomitant]
  5. LASIX [Concomitant]
  6. GLYBURIDE [Concomitant]
  7. LEVEMIR [Concomitant]
  8. POTASSIUM [Concomitant]
  9. QUINAPRIL [Concomitant]
  10. VERAPAMIL [Concomitant]
  11. WARFARIN [Concomitant]

REACTIONS (3)
  - Cardiac failure congestive [None]
  - Fatigue [None]
  - Asthenia [None]
